FAERS Safety Report 21146155 (Version 2)
Quarter: 2022Q3

REPORT INFORMATION
  Report Type: Spontaneous
  Country: ES (occurrence: None)
  Receive Date: 20220729
  Receipt Date: 20220909
  Transmission Date: 20221026
  Serious: Yes (Other)
  Sender: FDA-Public Use
  Company Number: 2022A265064

PATIENT
  Age: 77 Year
  Sex: Male

DRUGS (1)
  1. BENRALIZUMAB [Suspect]
     Active Substance: BENRALIZUMAB
     Indication: Asthma
     Route: 058
     Dates: start: 201904

REACTIONS (2)
  - Endocarditis [Recovered/Resolved]
  - Streptococcal endocarditis [Recovered/Resolved]
